FAERS Safety Report 6196926-1 (Version None)
Quarter: 2009Q2

REPORT INFORMATION
  Report Type: 
  Country: None (occurrence: None)
  Receive Date: 20090518
  Receipt Date: 20090518
  Transmission Date: 20091009
  Serious: No
  Sender: FDA-Public Use
  Company Number: None

PATIENT
  Age: 63 Year
  Sex: Female

DRUGS (1)
  1. NEXIUM [Suspect]
     Dosage: TAKE 1 CAPSULE TWICE A DAY ONE-HALF HOUR BEFORE BREAKFAST AND EVENING MEALS

REACTIONS (2)
  - DYSGEUSIA [None]
  - GLOSSODYNIA [None]
